FAERS Safety Report 5806164-7 (Version None)
Quarter: 2008Q3

REPORT INFORMATION
  Report Type: 
  Country: None (occurrence: None)
  Receive Date: 20080710
  Receipt Date: 20080704
  Transmission Date: 20090109
  Serious: Yes (Other)
  Sender: FDA-Public Use
  Company Number: JP-AVENTIS-200811020JP

PATIENT
  Age: 61 Year
  Sex: Male
  Weight: 55 kg

DRUGS (23)
  1. ARAVA [Suspect]
     Indication: RHEUMATOID ARTHRITIS
     Route: 048
     Dates: start: 20040421, end: 20040423
  2. ARAVA [Suspect]
     Route: 048
     Dates: start: 20040424
  3. OSTELUC [Concomitant]
     Route: 048
  4. PREDNISOLONE [Concomitant]
     Route: 048
  5. PROMAC                             /01312301/ [Concomitant]
     Route: 048
  6. ALFASULY [Concomitant]
     Route: 048
  7. FAMOTIDINE [Concomitant]
     Route: 048
     Dates: end: 20050626
  8. ALESION [Concomitant]
     Route: 048
     Dates: end: 20041108
  9. RHEUMATREX                         /00113801/ [Concomitant]
     Dosage: DOSE: 4 MG/WEEK
     Route: 048
     Dates: start: 20010315
  10. RHEUMATREX                         /00113801/ [Concomitant]
     Dosage: DOSE: 6 MG/WEEK
     Route: 048
     Dates: start: 20021130, end: 20040420
  11. RHEUMATREX                         /00113801/ [Concomitant]
     Dosage: DOSE: 2 MG/WEEK
     Route: 048
     Dates: start: 20050208, end: 20050829
  12. FOLIAMIN [Concomitant]
     Dosage: DOSE: 10 MG/WEEK
     Route: 048
     Dates: end: 20040420
  13. CLARITHROMYCIN [Concomitant]
     Route: 048
     Dates: end: 20050509
  14. NEOMALLERMIN TR [Concomitant]
     Route: 048
     Dates: start: 20041005, end: 20050111
  15. ZYRTEC [Concomitant]
     Route: 048
     Dates: start: 20041109, end: 20050404
  16. LEFTOSE                            /00274101/ [Concomitant]
     Route: 048
     Dates: start: 20050405, end: 20051212
  17. MUCOSOLVAN L [Concomitant]
     Dosage: DOSE: 1 CAPSULE
     Route: 048
     Dates: start: 20050405, end: 20051212
  18. CLARITIN [Concomitant]
     Route: 048
     Dates: start: 20050405, end: 20051212
  19. BREDININ [Concomitant]
     Route: 048
     Dates: start: 20050405, end: 20050607
  20. ERYTHROCIN                         /00020901/ [Concomitant]
     Route: 048
     Dates: start: 20050510, end: 20051212
  21. TAKEPRON [Concomitant]
     Route: 048
     Dates: start: 20050627
  22. ASPIRIN [Concomitant]
     Route: 048
     Dates: start: 20051107
  23. DOGMATYL [Concomitant]
     Route: 048
     Dates: start: 20051107

REACTIONS (6)
  - HYPOCALCAEMIA [None]
  - HYPOKALAEMIA [None]
  - LACUNAR INFARCTION [None]
  - LIVER DISORDER [None]
  - MYOCLONUS [None]
  - REFLUX OESOPHAGITIS [None]
